FAERS Safety Report 7310327-1 (Version None)
Quarter: 2011Q1

REPORT INFORMATION
  Report Type: 
  Country: None (occurrence: None)
  Receive Date: 20110224
  Receipt Date: 20110218
  Transmission Date: 20110831
  Serious: Yes (Other)
  Sender: FDA-Public Use
  Company Number: US-BRISTOL-MYERS SQUIBB COMPANY-15559081

PATIENT

DRUGS (1)
  1. ERBITUX [Suspect]
     Dosage: RECEIVED MANY YEARS AGO

REACTIONS (1)
  - SICK SINUS SYNDROME [None]
